FAERS Safety Report 6393450-8 (Version None)
Quarter: 2009Q4

REPORT INFORMATION
  Report Type: 
  Country: None (occurrence: None)
  Receive Date: 20091008
  Receipt Date: 20090924
  Transmission Date: 20100525
  Serious: Yes (Hospitalization)
  Sender: FDA-Public Use
  Company Number: JP-PFIZER INC-2009266837

PATIENT
  Age: 55 Year

DRUGS (2)
  1. CELECOX [Suspect]
     Dosage: 200 MG, 2X/DAY
  2. MUCOSTA [Concomitant]
     Route: 048

REACTIONS (1)
  - TOXIC SKIN ERUPTION [None]
